FAERS Safety Report 6724851-3 (Version None)
Quarter: 2010Q2

REPORT INFORMATION
  Report Type: 
  Country: None (occurrence: None)
  Receive Date: 20100513
  Receipt Date: 20100513
  Transmission Date: 20101027
  Serious: Yes (Other)
  Sender: FDA-Public Use
  Company Number: None

PATIENT
  Sex: Female

DRUGS (1)
  1. CRESTOR [Suspect]
     Indication: HYPERLIPIDAEMIA
     Dosage: 5 MG QD PO
     Route: 048
     Dates: start: 20091101, end: 20100430

REACTIONS (3)
  - GROIN ABSCESS [None]
  - OEDEMA MOUTH [None]
  - SWELLING [None]
